FAERS Safety Report 10033237 (Version 1)
Quarter: 2014Q1

REPORT INFORMATION
  Report Type: Spontaneous
  Country: GB (occurrence: GB)
  Receive Date: 20140324
  Receipt Date: 20140324
  Transmission Date: 20141002
  Serious: Yes (Hospitalization)
  Sender: FDA-Public Use
  Company Number: GB-MYLANLABS-2014S1005601

PATIENT
  Sex: Male

DRUGS (3)
  1. MIRTAZAPINE [Suspect]
     Dosage: UNKNOWN DOSE
  2. MIRTAZAPINE [Suspect]
     Dosage: DOSE: 60MG, 15 MG AT AM, 45 MG AT NIGHT
  3. MIRTAZAPINE [Suspect]
     Dosage: DOSE 45 MG

REACTIONS (2)
  - Blood albumin decreased [Unknown]
  - Overdose [Unknown]
